FAERS Safety Report 9067517 (Version 1)
Quarter: 2013Q1

REPORT INFORMATION
  Report Type: Spontaneous
  Country: US (occurrence: US)
  Receive Date: 20130214
  Receipt Date: 20130214
  Transmission Date: 20140127
  Serious: Yes (Hospitalization)
  Sender: FDA-Public Use
  Company Number: US-B.I. PHARMACEUTICALS,INC./RIDGEFIELD-2013-BI-03868BP

PATIENT
  Sex: Female
  Weight: 70 kg

DRUGS (1)
  1. SPIRIVA [Suspect]
     Indication: EMPHYSEMA
     Dosage: 18 MCG
     Route: 055
     Dates: start: 2004

REACTIONS (6)
  - Dyspnoea [Recovered/Resolved]
  - Arthritis [Not Recovered/Not Resolved]
  - Laceration [Not Recovered/Not Resolved]
  - Local swelling [Not Recovered/Not Resolved]
  - Lip swelling [Not Recovered/Not Resolved]
  - Lung infection [Recovered/Resolved]
